FAERS Safety Report 23395584 (Version 2)
Quarter: 2024Q1

REPORT INFORMATION
  Report Type: Spontaneous
  Country: US (occurrence: US)
  Receive Date: 20240112
  Receipt Date: 20240322
  Transmission Date: 20240409
  Serious: No
  Sender: FDA-Public Use
  Company Number: US-BRISTOL-MYERS SQUIBB COMPANY-2024-006383

PATIENT
  Age: 74 Year
  Sex: Female

DRUGS (1)
  1. REVLIMID [Suspect]
     Active Substance: LENALIDOMIDE
     Indication: Plasma cell myeloma
     Dosage: FREQUENCY: 1 TIME A DAY FOR 14 DAYS ON AND 14 DAYS OFF
     Route: 048
     Dates: start: 202306

REACTIONS (6)
  - Skin discolouration [Unknown]
  - Off label use [Unknown]
  - Mental disorder [Unknown]
  - Pruritus [Unknown]
  - Liver function test increased [Unknown]
  - General physical condition abnormal [Unknown]
